FAERS Safety Report 16343095 (Version 1)
Quarter: 2019Q3

REPORT INFORMATION
  Report Type: Spontaneous
  Country: US (occurrence: US)
  Receive Date: 20190521
  Receipt Date: 20190521
  Transmission Date: 20191004
  Serious: Yes (Death)
  Sender: FDA-Public Use
  Company Number: None

PATIENT
  Age: 52 Year
  Sex: Male

DRUGS (1)
  1. ELIQUIS [Suspect]
     Active Substance: APIXABAN
     Indication: ATRIAL FIBRILLATION

REACTIONS (14)
  - Pneumonia aspiration [None]
  - Loss of consciousness [None]
  - Cerebral haematoma [None]
  - Pulmonary oedema [None]
  - Atrial septal defect [None]
  - Fall [None]
  - Cardiac failure congestive [None]
  - Brain stem haemorrhage [None]
  - Intraventricular haemorrhage [None]
  - Nervous system disorder [None]
  - Brain midline shift [None]
  - Diabetic ketoacidosis [None]
  - Intracardiac thrombus [None]
  - Atrial fibrillation [None]

NARRATIVE: CASE EVENT DATE: 20181027
